FAERS Safety Report 4509658-X (Version None)
Quarter: 2004Q4

REPORT INFORMATION
  Report Type: 
  Country: None (occurrence: None)
  Receive Date: 20041124
  Receipt Date: 20040728
  Transmission Date: 20050328
  Serious: Yes (Hospitalization)
  Sender: FDA-Public Use
  Company Number: 200412389EU

PATIENT
  Age: 13 Year
  Sex: Female

DRUGS (7)
  1. KETEK [Suspect]
     Indication: PHARYNGITIS
     Route: 048
     Dates: start: 20040520, end: 20040520
  2. BUDESONIDE [Concomitant]
     Indication: RHINITIS ALLERGIC
     Dates: start: 20040514
  3. LORATADINE [Concomitant]
     Indication: RHINITIS ALLERGIC
     Route: 048
     Dates: start: 20040514
  4. CETYLPYRIDINIUM [Concomitant]
     Indication: PHARYNGITIS
     Dates: start: 20040520
  5. OXYBUPROCAINE [Concomitant]
     Indication: PHARYNGITIS
     Route: 048
  6. TYROTHRICIN [Concomitant]
     Indication: PHARYNGITIS
     Dates: start: 20040520
  7. ACETAMINOPHEN [Concomitant]
     Indication: PHARYNGITIS
     Route: 048
     Dates: start: 20040520

REACTIONS (6)
  - AGITATION [None]
  - DIZZINESS [None]
  - LOGORRHOEA [None]
  - MALAISE [None]
  - MYALGIA [None]
  - VISION BLURRED [None]
